FAERS Safety Report 8919875 (Version 1)
Quarter: 2012Q4

REPORT INFORMATION
  Report Type: 
  Country: US (occurrence: US)
  Receive Date: 20121121
  Receipt Date: 20121121
  Transmission Date: 20130627
  Serious: Yes (Other)
  Sender: FDA-Public Use
  Company Number: US-009507513-1211USA006952

PATIENT
  Age: 80 Year
  Sex: Female

DRUGS (1)
  1. ZIOPTAN [Suspect]
     Indication: INTRAOCULAR PRESSURE DECREASED
     Dosage: 1 DF, qpm
     Route: 047
     Dates: start: 20121105

REACTIONS (10)
  - Blindness [Not Recovered/Not Resolved]
  - Vision blurred [Not Recovered/Not Resolved]
  - Ocular hyperaemia [Not Recovered/Not Resolved]
  - Eyelid disorder [Not Recovered/Not Resolved]
  - Excessive eye blinking [Not Recovered/Not Resolved]
  - Eye disorder [Not Recovered/Not Resolved]
  - Heart rate increased [Not Recovered/Not Resolved]
  - Dry eye [Not Recovered/Not Resolved]
  - Throat lesion [Not Recovered/Not Resolved]
  - Hypersensitivity [Not Recovered/Not Resolved]
